FAERS Safety Report 23626625 (Version 1)
Quarter: 2024Q1

REPORT INFORMATION
  Report Type: Spontaneous
  Country: US (occurrence: None)
  Receive Date: 20240312
  Receipt Date: 20240312
  Transmission Date: 20240410
  Serious: Yes (Life-Threatening)
  Sender: FDA-Public Use
  Company Number: None

PATIENT
  Age: 61 Year
  Sex: Female
  Weight: 71.55 kg

DRUGS (2)
  1. LINZESS [Suspect]
     Active Substance: LINACLOTIDE
     Indication: Irritable bowel syndrome
     Dosage: 1 CAPSULE  ORAL?
     Route: 048
     Dates: start: 20240308, end: 20240312
  2. Venaflaxine [Concomitant]

REACTIONS (4)
  - Fatigue [None]
  - Asthenia [None]
  - Somnambulism [None]
  - Fatigue [None]

NARRATIVE: CASE EVENT DATE: 20240310
